FAERS Safety Report 10880661 (Version 2)
Quarter: 2015Q2

REPORT INFORMATION
  Report Type: Report from Study
  Country: GR (occurrence: GR)
  Receive Date: 20150303
  Receipt Date: 20150409
  Transmission Date: 20150821
  Serious: Yes (Death)
  Sender: FDA-Public Use
  Company Number: GR-AMGEN-GRCNI2015018199

PATIENT
  Age: 74 Year
  Sex: Female

DRUGS (5)
  1. PEGFILGRASTIM [Suspect]
     Active Substance: PEGFILGRASTIM
     Indication: PROPHYLAXIS
     Dosage: UNK
     Route: 065
     Dates: start: 20150207
  2. FILGRASTIM [Concomitant]
     Active Substance: FILGRASTIM
     Dosage: 48 UNK, QD
     Route: 058
     Dates: start: 20150213, end: 20150217
  3. DEXAMETHASONE. [Concomitant]
     Active Substance: DEXAMETHASONE
     Dosage: UNK
     Dates: start: 20150205
  4. CISPLATIN. [Concomitant]
     Active Substance: CISPLATIN
     Dosage: UNK
     Dates: start: 20150205
  5. CYTARABINE. [Concomitant]
     Active Substance: CYTARABINE
     Dosage: UNK
     Dates: start: 20150205

REACTIONS (1)
  - Cardiac arrest [Fatal]

NARRATIVE: CASE EVENT DATE: 20150217
